FAERS Safety Report 7781965-7 (Version None)
Quarter: 2011Q3

REPORT INFORMATION
  Report Type: 
  Country: None (occurrence: None)
  Receive Date: 20110927
  Receipt Date: 20110914
  Transmission Date: 20111222
  Serious: Yes (Other)
  Sender: FDA-Public Use
  Company Number: PHHY2011DE71968

PATIENT
  Sex: Female

DRUGS (1)
  1. GILENYA [Suspect]
     Indication: MULTIPLE SCLEROSIS
     Dosage: 0.5 MG/DAY
     Route: 048
     Dates: start: 20110614, end: 20110906

REACTIONS (20)
  - DIZZINESS [None]
  - HEADACHE [None]
  - CHEST DISCOMFORT [None]
  - NASOPHARYNGITIS [None]
  - VISUAL IMPAIRMENT [None]
  - HEMIPARESIS [None]
  - BALANCE DISORDER [None]
  - DIARRHOEA [None]
  - MULTIPLE SCLEROSIS RELAPSE [None]
  - NECK PAIN [None]
  - PYELONEPHRITIS [None]
  - VERTIGO [None]
  - ALOPECIA [None]
  - MUSCULOSKELETAL CHEST PAIN [None]
  - DYSPNOEA [None]
  - BACK PAIN [None]
  - LISTLESS [None]
  - MALAISE [None]
  - PANIC ATTACK [None]
  - COUGH [None]
